FAERS Safety Report 15036084 (Version 2)
Quarter: 2018Q3

REPORT INFORMATION
  Report Type: Spontaneous
  Country: US (occurrence: US)
  Receive Date: 20180620
  Receipt Date: 20180827
  Transmission Date: 20181010
  Serious: Yes (Other)
  Sender: FDA-Public Use
  Company Number: US-SA-2018SA161288

PATIENT
  Age: 52 Year
  Sex: Female
  Weight: 120.2 kg

DRUGS (12)
  1. HERCEPTIN [Concomitant]
     Active Substance: TRASTUZUMAB
  2. EFFEXOR [Concomitant]
     Active Substance: VENLAFAXINE HYDROCHLORIDE
  3. NORVASC [Concomitant]
     Active Substance: AMLODIPINE BESYLATE
  4. TAXOTERE [Suspect]
     Active Substance: DOCETAXEL
     Indication: BREAST CANCER FEMALE
     Dosage: UNK UNK, Q3W
     Route: 042
     Dates: start: 20160408, end: 20160408
  5. EFUDEX [Concomitant]
     Active Substance: FLUOROURACIL
  6. PROTONIX [OMEPRAZOLE] [Concomitant]
  7. ELLENCE [Concomitant]
     Active Substance: EPIRUBICIN HYDROCHLORIDE
  8. NEOSAR [Concomitant]
     Active Substance: CYCLOPHOSPHAMIDE
  9. TAXOTERE [Suspect]
     Active Substance: DOCETAXEL
     Dosage: UNK UNK, Q3W
     Route: 042
     Dates: start: 20160520, end: 20160520
  10. PERJETA [Concomitant]
     Active Substance: PERTUZUMAB
  11. LOSARTAN. [Concomitant]
     Active Substance: LOSARTAN
  12. DOXORUBICIN [Concomitant]
     Active Substance: DOXORUBICIN

REACTIONS (2)
  - Alopecia [Recovering/Resolving]
  - Psychological trauma [Unknown]

NARRATIVE: CASE EVENT DATE: 201604
